FAERS Safety Report 17245312 (Version 1)
Quarter: 2020Q1

REPORT INFORMATION
  Report Type: Spontaneous
  Country: MX (occurrence: MX)
  Receive Date: 20200108
  Receipt Date: 20200108
  Transmission Date: 20200409
  Serious: No
  Sender: FDA-Public Use
  Company Number: MX-LUPIN PHARMACEUTICALS INC.-2019-06474

PATIENT
  Age: 3 Year
  Sex: Female

DRUGS (1)
  1. OMNICEF R [Suspect]
     Active Substance: CEFDINIR
     Indication: PHARYNGITIS BACTERIAL
     Dosage: 10 MILLIGRAM/KILOGRAM
     Route: 048
     Dates: start: 2019

REACTIONS (2)
  - Family stress [Unknown]
  - Alopecia [Unknown]

NARRATIVE: CASE EVENT DATE: 2019
